FAERS Safety Report 9285786 (Version 1)
Quarter: 2013Q2

REPORT INFORMATION
  Report Type: Spontaneous
  Country: US (occurrence: None)
  Receive Date: 20130510
  Receipt Date: 20130510
  Transmission Date: 20140414
  Serious: Yes (Life-Threatening)
  Sender: FDA-Public Use
  Company Number: None

PATIENT
  Age: 37 Year
  Sex: Female
  Weight: 49.9 kg

DRUGS (2)
  1. MIRENA [Suspect]
     Indication: INTRA-UTERINE CONTRACEPTIVE DEVICE
  2. HCTZ [Concomitant]

REACTIONS (8)
  - Infection [None]
  - Haemorrhage [None]
  - Pain [None]
  - Haematemesis [None]
  - Blood pressure increased [None]
  - Pelvic inflammatory disease [None]
  - Ovarian cyst [None]
  - Medical device complication [None]
